FAERS Safety Report 9521309 (Version 2)
Quarter: 2014Q1

REPORT INFORMATION
  Report Type: Spontaneous
  Country: US (occurrence: None)
  Receive Date: 20130305
  Receipt Date: 20140306
  Transmission Date: 20141002
  Serious: Yes (Life-Threatening, Other)
  Sender: FDA-Public Use
  Company Number: 163-21880-12073121

PATIENT
  Age: 59 Year
  Sex: Female
  Weight: 84.82 kg

DRUGS (20)
  1. REVLIMID [Suspect]
     Indication: PLASMA CELL MYELOMA
     Route: 048
     Dates: start: 20120413, end: 2012
  2. ACYCLOVIR (ACICLOVIR) (ACICLOVIR) [Concomitant]
  3. BABY ASPIRIN (ACETYLSALICYLIC ACID) [Concomitant]
  4. ATENOLOL (ATENOLOL) [Concomitant]
  5. AZOPT (BRINZOLAMIDE) (SUSPENSION) [Concomitant]
  6. BROM MAL/PE DEX HBR (DIMETAPP DM) (LIQUID) [Concomitant]
  7. DEXAMETHASONE (DEXAMETHASONE) [Concomitant]
  8. DIFLUCAN (FLUCONAZOLE) [Concomitant]
  9. MULTIVITAMIN (MULTIVITAMINS) [Concomitant]
  10. OMEPRAZOLE (OMEPRAZOLE) [Concomitant]
  11. VITAMIN C [Concomitant]
  12. VITAMIN D-3 (COLECALCIFEROL) [Concomitant]
  13. ZOMETA (ZOLEDRONIC ACID) [Concomitant]
  14. VOLTAREN (DICLOFENAC SODIUM) [Concomitant]
  15. BRIMONIDINE TARTRATE [Concomitant]
  16. PROBIOTIC (BIFIDOBACTERIUM LACTIS) [Concomitant]
  17. XANAX (ALPRAZOLAM) [Concomitant]
  18. DESIPRAMINE HCL (DESIPRAMINE HYDROCHLORIDE) [Concomitant]
  19. GLUCOSAMINE/CHONDROITIN (GLUCOSAMINE W/CHONDROITIN SULFATE) [Concomitant]
  20. TYLENOL EXTRA STRENGTH (PARACETAMOL) [Concomitant]

REACTIONS (1)
  - Deep vein thrombosis [None]
